FAERS Safety Report 13851634 (Version 3)
Quarter: 2017Q4

REPORT INFORMATION
  Report Type: Spontaneous
  Country: US (occurrence: US)
  Receive Date: 20170810
  Receipt Date: 20171117
  Transmission Date: 20180320
  Serious: No
  Sender: FDA-Public Use
  Company Number: US-009507513-1708USA004384

PATIENT
  Sex: Female

DRUGS (1)
  1. NASONEX [Suspect]
     Active Substance: MOMETASONE FUROATE
     Dosage: STRENGTH: 50 MCG 120DOS LSP US
     Dates: start: 201611

REACTIONS (1)
  - Drug ineffective [Not Recovered/Not Resolved]
